FAERS Safety Report 21458109 (Version 1)
Quarter: 2022Q4

REPORT INFORMATION
  Report Type: Spontaneous
  Country: CH (occurrence: CH)
  Receive Date: 20221014
  Receipt Date: 20221014
  Transmission Date: 20230113
  Serious: No
  Sender: FDA-Public Use
  Company Number: CH-PFIZER INC-202201205228

PATIENT
  Sex: Female

DRUGS (3)
  1. PAXLOVID [Interacting]
     Active Substance: NIRMATRELVIR\RITONAVIR
     Indication: COVID-19 treatment
     Dosage: UNK
  2. SIMVASTATIN [Interacting]
     Active Substance: SIMVASTATIN
     Dosage: UNK
  3. LEVOTHYROXINE SODIUM [Interacting]
     Active Substance: LEVOTHYROXINE SODIUM
     Dosage: UNK

REACTIONS (2)
  - Contraindicated product administered [Unknown]
  - Drug interaction [Unknown]
